FAERS Safety Report 13268579 (Version 1)
Quarter: 2017Q1

REPORT INFORMATION
  Report Type: Spontaneous
  Country: US (occurrence: US)
  Receive Date: 20170224
  Receipt Date: 20170224
  Transmission Date: 20170428
  Serious: Yes (Other)
  Sender: FDA-Public Use
  Company Number: None

PATIENT
  Sex: Female

DRUGS (2)
  1. MIRENA [Suspect]
     Active Substance: LEVONORGESTREL
     Indication: CONTRACEPTION
     Dates: start: 20150412, end: 20160630
  2. WOMEN^S MULTI-VITAMIN [Concomitant]

REACTIONS (3)
  - Pain [None]
  - Pelvic inflammatory disease [None]
  - Pyrexia [None]
